FAERS Safety Report 13896283 (Version 1)
Quarter: 2017Q3

REPORT INFORMATION
  Report Type: Spontaneous
  Country: US (occurrence: US)
  Receive Date: 20170823
  Receipt Date: 20170823
  Transmission Date: 20171127
  Serious: No
  Sender: FDA-Public Use
  Company Number: US-SUN PHARMACEUTICAL INDUSTRIES LTD-2016SUN00529

PATIENT
  Age: 80 Year
  Sex: Female

DRUGS (2)
  1. TECHNETIUM TC-99M PYROPHOSPHATE KIT [Suspect]
     Active Substance: TECHNETIUM TC-99M PYROPHOSPHATE
     Indication: MULTIPLE GATED ACQUISITION SCAN
     Dosage: 3 OF 5ML/7.2 MG PYP
     Route: 042
     Dates: start: 20161128, end: 20161128
  2. SODIUM PERTECHNETATE TC 99M [Suspect]
     Active Substance: TECHNETIUM TC-99M SODIUM PERTECHNETATE
     Indication: MULTIPLE GATED ACQUISITION SCAN
     Dosage: 25.5 MCI, TC04
     Route: 042
     Dates: start: 20161128, end: 20161128

REACTIONS (1)
  - Radioisotope scan abnormal [Unknown]

NARRATIVE: CASE EVENT DATE: 20161128
